FAERS Safety Report 7260983-1 (Version None)
Quarter: 2011Q1

REPORT INFORMATION
  Report Type: 
  Country: None (occurrence: None)
  Receive Date: 20110130
  Receipt Date: 20101123
  Transmission Date: 20110831
  Serious: No
  Sender: FDA-Public Use
  Company Number: US-ABBOTT-10P-163-0687392-00

PATIENT
  Age: 53 Year
  Sex: Female

DRUGS (9)
  1. CARISOPRODOL [Concomitant]
     Indication: MUSCLE RELAXANT THERAPY
  2. VALIUM [Concomitant]
     Indication: INSOMNIA
  3. NEBULIZER TREATMENTS [Concomitant]
     Indication: PRODUCT USED FOR UNKNOWN INDICATION
  4. AZITHROMYCIN [Concomitant]
     Indication: PRODUCT USED FOR UNKNOWN INDICATION
  5. FOLIC ACID [Concomitant]
     Indication: PRODUCT USED FOR UNKNOWN INDICATION
  6. PRILOSEC [Concomitant]
     Indication: PROPHYLAXIS AGAINST GASTROINTESTINAL ULCER
  7. HUMIRA [Suspect]
     Indication: RHEUMATOID ARTHRITIS
  8. METHOTREXATE [Concomitant]
     Indication: PRODUCT USED FOR UNKNOWN INDICATION
     Dosage: 8-2.5MG TABS WEEKLY
  9. VOLUTAREN [Concomitant]
     Dosage: 1% GEL-4 TIMES DAILY TO AFFECTED AREAS

REACTIONS (2)
  - PNEUMONIA [None]
  - FUNGAL INFECTION [None]
